FAERS Safety Report 22659681 (Version 1)
Quarter: 2023Q2

REPORT INFORMATION
  Report Type: Spontaneous
  Country: US (occurrence: None)
  Receive Date: 20230630
  Receipt Date: 20230630
  Transmission Date: 20230722
  Serious: Yes (Other)
  Sender: FDA-Public Use
  Company Number: None

PATIENT
  Sex: Female

DRUGS (9)
  1. RINVOQ [Suspect]
     Active Substance: UPADACITINIB
     Indication: Rheumatoid arthritis
     Dosage: FREQUENCY : DAILY;?
     Route: 048
     Dates: start: 20220730
  2. AMLODIPINE [Concomitant]
     Active Substance: AMLODIPINE BESYLATE
  3. BUDES/FORTMOT AER [Concomitant]
  4. DICYCLOMINE [Concomitant]
     Active Substance: DICYCLOMINE HYDROCHLORIDE
  5. DULERA AER [Concomitant]
  6. FLUTICASONE SPR [Concomitant]
  7. FOLIC ACID [Concomitant]
     Active Substance: FOLIC ACID
  8. MONTELUKAST [Concomitant]
     Active Substance: MONTELUKAST SODIUM
  9. MULTIVITAMIN ADULT TAB [Concomitant]

REACTIONS (4)
  - Limb operation [None]
  - Pain [None]
  - Loss of personal independence in daily activities [None]
  - Therapy interrupted [None]
